FAERS Safety Report 6004106-5 (Version None)
Quarter: 2008Q4

REPORT INFORMATION
  Report Type: 
  Country: None (occurrence: None)
  Receive Date: 20081212
  Receipt Date: 20081202
  Transmission Date: 20090506
  Serious: Yes (Hospitalization)
  Sender: FDA-Public Use
  Company Number: GXKR2008FR10954

PATIENT
  Age: 32 Year
  Sex: Male

DRUGS (3)
  1. CLOZAPINE [Suspect]
     Indication: SCHIZOPHRENIA
     Dosage: 900 MG, QD, 450 MG, QD, 400 MG, QD
     Dates: start: 20010601
  2. FLUVOXAMINE MALEATE [Suspect]
     Indication: ENZYME ACTIVITY DECREASED
     Dosage: 50 MG, QD, 25 MG, QD, 50 MG, QD
     Dates: start: 20050901
  3. CANNABIS (CANNABIS, CANNABIS SATIVA) [Concomitant]

REACTIONS (11)
  - CONDITION AGGRAVATED [None]
  - DRUG INEFFECTIVE [None]
  - DRUG INTERACTION [None]
  - DRUG LEVEL DECREASED [None]
  - DRUG LEVEL INCREASED [None]
  - GRANDIOSITY [None]
  - INSOMNIA [None]
  - MANIA [None]
  - PSYCHOTIC DISORDER [None]
  - SEDATION [None]
  - THINKING ABNORMAL [None]
